FAERS Safety Report 8215748-0 (Version None)
Quarter: 2012Q1

REPORT INFORMATION
  Report Type: 
  Country: None (occurrence: None)
  Receive Date: 20120316
  Receipt Date: 20120308
  Transmission Date: 20120608
  Serious: Yes (Hospitalization, Other)
  Sender: FDA-Public Use
  Company Number: US-BAYER-201037413NA

PATIENT
  Age: 46 Year
  Sex: Female
  Weight: 90.703 kg

DRUGS (7)
  1. CORTISPORIN OPHTHALMIC [Concomitant]
  2. PLAVIX [Concomitant]
  3. VITAMIN E [Concomitant]
  4. YASMIN [Suspect]
     Indication: PRODUCT USED FOR UNKNOWN INDICATION
     Dosage: UNK
     Route: 048
     Dates: start: 20040721
  5. SALINE EYE DROPS [Concomitant]
  6. YASMIN [Suspect]
  7. CAPTOPRIL [Concomitant]
     Dosage: 25 MG, TID
     Route: 048

REACTIONS (6)
  - PAIN [None]
  - SCAR [None]
  - INJURY [None]
  - CEREBROVASCULAR ACCIDENT [None]
  - SUPERIOR SAGITTAL SINUS THROMBOSIS [None]
  - EMOTIONAL DISTRESS [None]
